FAERS Safety Report 6736064-X (Version None)
Quarter: 2010Q2

REPORT INFORMATION
  Report Type: 
  Country: None (occurrence: None)
  Receive Date: 20100521
  Receipt Date: 20100512
  Transmission Date: 20101027
  Serious: Yes (Other)
  Sender: FDA-Public Use
  Company Number: US-PFIZER INC-2010060185

PATIENT
  Sex: Female

DRUGS (2)
  1. ALDACTONE [Suspect]
     Indication: ACNE
     Dosage: 100 MG, 2X/DAY
     Route: 048
     Dates: start: 20100430, end: 20100512
  2. CLEOCIN T [Concomitant]
     Indication: ACNE
     Dosage: UNK
     Route: 061

REACTIONS (3)
  - PYREXIA [None]
  - RASH [None]
  - SWELLING [None]
